FAERS Safety Report 10812222 (Version 1)
Quarter: 2015Q1

REPORT INFORMATION
  Report Type: Spontaneous
  Country: US (occurrence: None)
  Receive Date: 20150213
  Receipt Date: 20150213
  Transmission Date: 20150721
  Serious: No
  Sender: FDA-Public Use
  Company Number: None

PATIENT
  Age: 68 Year
  Sex: Female

DRUGS (2)
  1. SUTENT [Suspect]
     Active Substance: SUNITINIB MALATE
     Indication: CARCINOID TUMOUR
     Route: 048
     Dates: start: 20141112
  2. OCTREOTIDE [Concomitant]
     Active Substance: OCTREOTIDE

REACTIONS (1)
  - Hair colour changes [None]

NARRATIVE: CASE EVENT DATE: 201412
